FAERS Safety Report 18890477 (Version 1)
Quarter: 2021Q1

REPORT INFORMATION
  Report Type: Other
  Country: RO (occurrence: RO)
  Receive Date: 20210214
  Receipt Date: 20210214
  Transmission Date: 20210420
  Serious: Yes (Other)
  Sender: FDA-Public Use
  Company Number: RO-ROCHE-2768069

PATIENT
  Age: 64 Year
  Sex: Male

DRUGS (2)
  1. ACTILYSE [Suspect]
     Active Substance: ALTEPLASE
     Indication: CAROTID ARTERY DISSECTION
     Route: 065
  2. ACTILYSE [Suspect]
     Active Substance: ALTEPLASE
     Indication: ISCHAEMIC STROKE

REACTIONS (3)
  - Subarachnoid haemorrhage [Unknown]
  - Brain stem infarction [Unknown]
  - Cardiac arrest [Recovered/Resolved]
